FAERS Safety Report 21604586 (Version 1)
Quarter: 2022Q4

REPORT INFORMATION
  Report Type: Spontaneous
  Country: US (occurrence: US)
  Receive Date: 20221116
  Receipt Date: 20221116
  Transmission Date: 20230112
  Serious: Yes (Other)
  Sender: FDA-Public Use
  Company Number: US-SA-2022SA458346

PATIENT
  Sex: Female

DRUGS (7)
  1. ALEMTUZUMAB [Suspect]
     Active Substance: ALEMTUZUMAB
     Indication: Aplasia pure red cell
     Dosage: UNK
  2. ANTI-THYMOCYTE GLOBULIN (RABBIT) NOS [Suspect]
     Active Substance: LAPINE T-LYMPHOCYTE IMMUNE GLOBULIN
     Indication: Aplasia pure red cell
     Dosage: UNK
  3. CYCLOPHOSPHAMIDE [Suspect]
     Active Substance: CYCLOPHOSPHAMIDE
     Indication: Aplasia pure red cell
     Dosage: UNK
     Route: 048
  4. CYCLOSPORINE [Concomitant]
     Active Substance: CYCLOSPORINE
     Indication: Aplasia pure red cell
     Dosage: UNK
  5. PREDNISONE [Concomitant]
     Active Substance: PREDNISONE
     Indication: Aplasia pure red cell
     Dosage: 60 MG, QD
  6. PREDNISONE [Concomitant]
     Active Substance: PREDNISONE
     Dosage: 3 MONTH TAPER
  7. RITUXIMAB [Concomitant]
     Active Substance: RITUXIMAB
     Indication: Aplasia pure red cell
     Dosage: 375 MG/M2, QW

REACTIONS (2)
  - Neutropenia [Unknown]
  - Off label use [Unknown]
